FAERS Safety Report 5380845-4 (Version None)
Quarter: 2007Q3

REPORT INFORMATION
  Report Type: 
  Country: None (occurrence: None)
  Receive Date: 20070706
  Receipt Date: 20070629
  Transmission Date: 20080115
  Serious: Yes (Other)
  Sender: FDA-Public Use
  Company Number: US-ASTRAZENECA-2007UW12384

PATIENT
  Age: 56 Year
  Sex: Female

DRUGS (6)
  1. FASLODEX [Suspect]
     Indication: BREAST CANCER METASTATIC
     Route: 030
     Dates: start: 20070503, end: 20070503
  2. FASLODEX [Suspect]
     Route: 030
     Dates: start: 20061001
  3. AREDIA [Interacting]
     Indication: BONE CANCER METASTATIC
     Route: 042
  4. EFFEXOR [Concomitant]
     Indication: ANXIETY
     Route: 048
  5. EFFEXOR [Concomitant]
     Indication: DEPRESSION
     Route: 048
  6. LISINOPRIL [Concomitant]
     Indication: HYPERTENSION
     Route: 048

REACTIONS (7)
  - CHILLS [None]
  - DYSPNOEA [None]
  - INJECTION SITE IRRITATION [None]
  - RASH [None]
  - SWOLLEN TONGUE [None]
  - THROAT TIGHTNESS [None]
  - URTICARIA [None]
